FAERS Safety Report 20469276 (Version 2)
Quarter: 2022Q1

REPORT INFORMATION
  Report Type: Spontaneous
  Country: US (occurrence: US)
  Receive Date: 20220214
  Receipt Date: 20220311
  Transmission Date: 20220423
  Serious: Yes (Other)
  Sender: FDA-Public Use
  Company Number: US-GW PHARMA-202202USGW00613

PATIENT
  Sex: Female
  Weight: 48.2 kg

DRUGS (6)
  1. EPIDIOLEX [Suspect]
     Active Substance: CANNABIDIOL
     Indication: Partial seizures
     Dosage: 4.15 MG/KG/DAY, 100 MILLIGRAM, BID
     Route: 048
     Dates: start: 202201, end: 2022
  2. EPIDIOLEX [Suspect]
     Active Substance: CANNABIDIOL
     Indication: Epilepsy
     Dosage: 8.3 MG/KG/DAY, 200 MILLIGRAM, BID
     Route: 048
     Dates: start: 2022, end: 2022
  3. EPIDIOLEX [Suspect]
     Active Substance: CANNABIDIOL
     Indication: Focal dyscognitive seizures
     Dosage: 12.45 MG/KG/DAY, 300 MILLIGRAM, BID
     Route: 048
     Dates: start: 2022, end: 2022
  4. EPIDIOLEX [Suspect]
     Active Substance: CANNABIDIOL
     Indication: Epilepsy
     Dosage: 16.6 MG/KG/DAY, 400 MILLIGRAM, BID (NEW RX FOR 300 MG BID SCHEDULED TO BE DELIVERED)
     Route: 048
     Dates: start: 2022
  5. EPIDIOLEX [Suspect]
     Active Substance: CANNABIDIOL
     Dosage: UNK (ADDITIONAL LOT NUMBER)
     Route: 048
     Dates: start: 2022
  6. DEPAKOTE [Concomitant]
     Active Substance: DIVALPROEX SODIUM
     Indication: Product used for unknown indication
     Dosage: UNK
     Route: 065
     Dates: end: 2022

REACTIONS (3)
  - Suicidal ideation [Not Recovered/Not Resolved]
  - Weight increased [Unknown]
  - Product use in unapproved indication [Unknown]

NARRATIVE: CASE EVENT DATE: 20220101
